FAERS Safety Report 11559944 (Version 1)
Quarter: 2015Q3

REPORT INFORMATION
  Report Type: Report from Study
  Country: US (occurrence: US)
  Receive Date: 20150928
  Receipt Date: 20150928
  Transmission Date: 20151125
  Serious: Yes (Other)
  Sender: FDA-Public Use
  Company Number: US-BAYER-2015-365503

PATIENT
  Age: 90 Year
  Sex: Male

DRUGS (2)
  1. NEXAVAR [Suspect]
     Active Substance: SORAFENIB
     Indication: HEPATIC CANCER
     Dosage: 400 MG, BID
     Route: 048
     Dates: start: 20150521
  2. NEXAVAR [Suspect]
     Active Substance: SORAFENIB
     Indication: HEPATIC CANCER
     Dosage: 800 MG, QD
     Route: 048
     Dates: start: 20150804

REACTIONS (7)
  - Abasia [None]
  - Pain in extremity [None]
  - Decreased appetite [None]
  - Fatigue [None]
  - Asthenia [None]
  - Drug dose omission [None]
  - Dry skin [None]

NARRATIVE: CASE EVENT DATE: 20150618
